FAERS Safety Report 4713984-9 (Version None)
Quarter: 2005Q3

REPORT INFORMATION
  Report Type: 
  Country: None (occurrence: None)
  Receive Date: 20050712
  Receipt Date: 20050627
  Transmission Date: 20060218
  Serious: Yes (Hospitalization)
  Sender: FDA-Public Use
  Company Number: FR_050606678

PATIENT
  Age: 69 Year
  Sex: Female

DRUGS (2)
  1. GEMZAR [Suspect]
     Indication: BREAST CANCER METASTATIC
     Dosage: 1790 MG OTHER
     Route: 050
     Dates: start: 20050222
  2. CALYX (DOXORUBICIN HYDROCHLORIDE) [Concomitant]

REACTIONS (6)
  - CHILLS [None]
  - DIZZINESS [None]
  - FALL [None]
  - FEBRILE NEUTROPENIA [None]
  - PANCYTOPENIA [None]
  - PYREXIA [None]
